FAERS Safety Report 6561942-4 (Version None)
Quarter: 2010Q1

REPORT INFORMATION
  Report Type: 
  Country: None (occurrence: None)
  Receive Date: 20100130
  Receipt Date: 20091124
  Transmission Date: 20100710
  Serious: No
  Sender: FDA-Public Use
  Company Number: US-ABBOTT-09P-163-0602904-00

PATIENT
  Sex: Female
  Weight: 56.296 kg

DRUGS (8)
  1. HUMIRA [Suspect]
     Indication: CROHN'S DISEASE
     Route: 058
     Dates: start: 20090906
  2. HECTOROL [Suspect]
     Indication: DRUG USE FOR UNKNOWN INDICATION
     Dates: start: 20091005
  3. CALCIUM [Concomitant]
     Indication: OSTEOPOROSIS
     Route: 048
  4. ALLOPURINOL [Concomitant]
     Indication: GOUT
     Route: 048
  5. NEXIUM [Concomitant]
     Indication: GASTROOESOPHAGEAL REFLUX DISEASE
     Route: 048
  6. LOMOTIL [Concomitant]
     Indication: CROHN'S DISEASE
     Dosage: 2 IN 1 DAY; MAY TAKE ADDTL; PRN
  7. PROCRIT [Concomitant]
     Indication: HAEMOGLOBIN DECREASED
     Dates: start: 20080101
  8. CALCITONIN SALMON [Concomitant]
     Indication: OSTEOPOROSIS
     Route: 045

REACTIONS (1)
  - HEADACHE [None]
